FAERS Safety Report 22905231 (Version 3)
Quarter: 2024Q3

REPORT INFORMATION
  Report Type: Report from Study
  Country: US (occurrence: US)
  Receive Date: 20230905
  Receipt Date: 20240828
  Transmission Date: 20241017
  Serious: Yes (Other)
  Sender: ABBVIE
  Company Number: US-ABBVIE-5391632

PATIENT
  Sex: Male

DRUGS (3)
  1. SKYRIZI [Suspect]
     Active Substance: RISANKIZUMAB-RZAA
     Indication: Psoriasis
     Route: 058
     Dates: start: 20230111
  2. SKYRIZI [Suspect]
     Active Substance: RISANKIZUMAB-RZAA
     Route: 058
     Dates: start: 20230110, end: 20230110
  3. SKYRIZI [Suspect]
     Active Substance: RISANKIZUMAB-RZAA
     Route: 058
     Dates: start: 2022

REACTIONS (11)
  - Colon operation [Unknown]
  - Pancreatitis [Recovered/Resolved]
  - Therapeutic response shortened [Unknown]
  - Panic reaction [Unknown]
  - Injection site haemorrhage [Unknown]
  - Scar [Unknown]
  - Pancreas infection [Unknown]
  - Lung hyperinflation [Unknown]
  - Arthralgia [Not Recovered/Not Resolved]
  - Chronic obstructive pulmonary disease [Unknown]
  - Pancreatitis [Unknown]

NARRATIVE: CASE EVENT DATE: 20230101
